FAERS Safety Report 24650770 (Version 1)
Quarter: 2024Q4

REPORT INFORMATION
  Report Type: Other
  Country: PL (occurrence: PL)
  Receive Date: 20241122
  Receipt Date: 20241122
  Transmission Date: 20250115
  Serious: Yes (Hospitalization)
  Sender: ANI
  Company Number: PL-ANIPHARMA-012869

PATIENT
  Age: 6 Week
  Sex: Male

DRUGS (3)
  1. PHENYTOIN [Suspect]
     Active Substance: PHENYTOIN
     Indication: Epilepsy
  2. CLOBAZAM [Concomitant]
     Active Substance: CLOBAZAM
     Indication: Epilepsy
  3. CARBAMAZEPINE [Concomitant]
     Active Substance: CARBAMAZEPINE
     Indication: Epilepsy

REACTIONS (2)
  - Hyponatraemia [Recovered/Resolved]
  - Drug ineffective [Unknown]
